FAERS Safety Report 5157866-X (Version None)
Quarter: 2006Q4

REPORT INFORMATION
  Report Type: 
  Country: None (occurrence: None)
  Receive Date: 20061127
  Receipt Date: 20061114
  Transmission Date: 20070319
  Serious: Yes (Other)
  Sender: FDA-Public Use
  Company Number: US-ROCHE-471470

PATIENT
  Age: 9 Year
  Sex: Female
  Weight: 36.3 kg

DRUGS (2)
  1. TAMIFLU [Suspect]
     Route: 065
     Dates: start: 20061027, end: 20061027
  2. AMOXICILLIN [Concomitant]
     Route: 048
     Dates: start: 20061027, end: 20061029

REACTIONS (4)
  - AGITATION [None]
  - DYSPNOEA [None]
  - EMOTIONAL DISORDER [None]
  - HALLUCINATION [None]
